FAERS Safety Report 25330182 (Version 2)
Quarter: 2025Q3

REPORT INFORMATION
  Report Type: Spontaneous
  Country: US (occurrence: US)
  Receive Date: 20250519
  Receipt Date: 20250709
  Transmission Date: 20251021
  Serious: No
  Sender: BIOGEN
  Company Number: US-BIOGEN-2025BI01311236

PATIENT
  Sex: Female

DRUGS (1)
  1. SPINRAZA [Suspect]
     Active Substance: NUSINERSEN
     Indication: Product used for unknown indication
     Route: 050
     Dates: start: 20220414

REACTIONS (2)
  - Nasopharyngitis [Not Recovered/Not Resolved]
  - Limb injury [Not Recovered/Not Resolved]
